FAERS Safety Report 8984420 (Version 1)
Quarter: 2012Q4

REPORT INFORMATION
  Report Type: Spontaneous
  Country: ES (occurrence: None)
  Receive Date: 20121214
  Receipt Date: 20121214
  Transmission Date: 20130627
  Serious: Yes (Death, Hospitalization)
  Sender: FDA-Public Use
  Company Number: 2012-003093

PATIENT
  Age: 90 Year
  Sex: Female
  Weight: 60 kg

DRUGS (10)
  1. RISEDRONATE [Suspect]
     Indication: BONE MASS DECREASED
     Route: 048
     Dates: start: 20111114, end: 20111117
  2. RISEDRONATE [Suspect]
     Indication: TROCHANTERIC FEMORAL FRACTURE
     Route: 048
     Dates: start: 20111114, end: 20111117
  3. CALCIUM [Concomitant]
  4. VITAMIN D [Concomitant]
  5. PARACETAMOL [Concomitant]
  6. DEXKETOPROFEN (DEXKETOPROFEN) [Concomitant]
  7. RABEPRAZOLE (RABEPRAZOLE) [Concomitant]
  8. ENOXAPARIN (ENOXAPARIN) [Concomitant]
  9. MACROGOL (MACROGOL) [Concomitant]
  10. ALL OTHER THERAPEUTIC PRODUCTS [Concomitant]

REACTIONS (11)
  - Cardiac failure congestive [None]
  - Aortic stenosis [None]
  - Mitral valve incompetence [None]
  - Pulmonary embolism [None]
  - Clostridium difficile colitis [None]
  - Urinary tract infection pseudomonal [None]
  - Anaemia [None]
  - Suffocation feeling [None]
  - Dyspnoea [None]
  - Angina pectoris [None]
  - Pathogen resistance [None]
